FAERS Safety Report 7486796-3 (Version None)
Quarter: 2011Q2

REPORT INFORMATION
  Report Type: 
  Country: None (occurrence: None)
  Receive Date: 20110517
  Receipt Date: 20110511
  Transmission Date: 20111010
  Serious: Yes (Hospitalization, Other)
  Sender: FDA-Public Use
  Company Number: FR-PFIZER INC-2011100485

PATIENT
  Age: 47 Year
  Sex: Male

DRUGS (1)
  1. SIROLIMUS [Suspect]
     Indication: IMMUNOSUPPRESSANT DRUG THERAPY
     Dosage: UNK
     Route: 048
     Dates: start: 20060324, end: 20080709

REACTIONS (2)
  - LUNG DISORDER [None]
  - ACTINOMYCOSIS [None]
